FAERS Safety Report 25980347 (Version 1)
Quarter: 2025Q4

REPORT INFORMATION
  Report Type: Spontaneous
  Country: EU (occurrence: EU)
  Receive Date: 20251030
  Receipt Date: 20251030
  Transmission Date: 20260119
  Serious: Yes (Other)
  Sender: FRESENIUS KABI
  Company Number: EU-PEI-202500022972

PATIENT
  Age: 74 Year
  Sex: Female

DRUGS (5)
  1. TYENNE [Suspect]
     Active Substance: TOCILIZUMAB-AAZG
     Indication: Rheumatoid arthritis
     Dates: start: 202501
  2. TYENNE [Suspect]
     Active Substance: TOCILIZUMAB-AAZG
     Indication: Cytokine release syndrome
  3. TYENNE [Suspect]
     Active Substance: TOCILIZUMAB-AAZG
     Indication: Juvenile idiopathic arthritis
  4. TYENNE [Suspect]
     Active Substance: TOCILIZUMAB-AAZG
     Indication: COVID-19
  5. TYENNE [Suspect]
     Active Substance: TOCILIZUMAB-AAZG
     Indication: Giant cell arteritis

REACTIONS (3)
  - Ventricular fibrillation [Unknown]
  - Angina pectoris [Unknown]
  - Dyspnoea [Unknown]

NARRATIVE: CASE EVENT DATE: 20250201
